FAERS Safety Report 21881098 (Version 3)
Quarter: 2023Q1

REPORT INFORMATION
  Report Type: Report from Study
  Country: US (occurrence: US)
  Receive Date: 20230118
  Receipt Date: 20230321
  Transmission Date: 20230418
  Serious: Yes (Hospitalization)
  Sender: FDA-Public Use
  Company Number: US-BIOGEN-2023BI01181313

PATIENT
  Age: 42 Year
  Sex: Female

DRUGS (3)
  1. TYSABRI [Suspect]
     Active Substance: NATALIZUMAB
     Indication: Multiple sclerosis
     Dosage: INFUSED OVER 1 HOUR
     Route: 050
     Dates: start: 20110509
  2. TYSABRI [Suspect]
     Active Substance: NATALIZUMAB
     Route: 050
     Dates: start: 20110420
  3. GABAPENTIN [Concomitant]
     Active Substance: GABAPENTIN
     Indication: Anxiety
     Route: 050
     Dates: start: 202212, end: 202212

REACTIONS (6)
  - Muscle tightness [Recovered/Resolved]
  - Gait inability [Recovered/Resolved]
  - Abdominal pain upper [Recovered/Resolved]
  - Central nervous system lesion [Not Recovered/Not Resolved]
  - Gallbladder hypofunction [Unknown]
  - Weight decreased [Unknown]

NARRATIVE: CASE EVENT DATE: 20221201
